FAERS Safety Report 7417149-1 (Version None)
Quarter: 2011Q2

REPORT INFORMATION
  Report Type: 
  Country: None (occurrence: None)
  Receive Date: 20110415
  Receipt Date: 20110311
  Transmission Date: 20111010
  Serious: Yes (Hospitalization, Other)
  Sender: FDA-Public Use
  Company Number: US-BAYER-201032774NA

PATIENT
  Age: 30 Year
  Sex: Female
  Weight: 52.154 kg

DRUGS (10)
  1. EQUATE [Concomitant]
     Dosage: UNK
     Route: 048
     Dates: start: 20080714
  2. DICYCLOMINE [Concomitant]
     Dosage: 10 MG, UNK
     Route: 048
     Dates: start: 20080804
  3. EQ ALLERGY ELIXIR [Concomitant]
     Dosage: UNK
     Route: 048
     Dates: start: 20080714
  4. BELLADONNA ALKALOIDS [Concomitant]
     Dosage: UNK
     Route: 048
     Dates: start: 20081013
  5. YASMIN [Suspect]
     Indication: ORAL CONTRACEPTION
     Dosage: UNK UNK, UNK
     Route: 048
     Dates: start: 20040101, end: 20080529
  6. OCELLA [Suspect]
     Indication: ORAL CONTRACEPTION
     Dosage: UNK UNK, UNK
     Route: 048
     Dates: start: 20080629, end: 20091021
  7. METOCLOPRAM [Concomitant]
     Dosage: 10 MG, UNK
     Route: 048
     Dates: start: 20081203
  8. ANTACIDS [Concomitant]
  9. METHYLPREDISONE [Concomitant]
     Dosage: 4 MG, UNK
     Route: 048
     Dates: start: 20081118
  10. PREVACID [Concomitant]

REACTIONS (3)
  - GALLBLADDER DISORDER [None]
  - CHOLECYSTITIS [None]
  - BILIARY DYSKINESIA [None]
